FAERS Safety Report 8907757 (Version 1)
Quarter: 2012Q4

REPORT INFORMATION
  Report Type: 
  Country: US (occurrence: US)
  Receive Date: 20121113
  Receipt Date: 20121113
  Transmission Date: 20130627
  Serious: No
  Sender: FDA-Public Use
  Company Number: US-AMGEN-USASP2012010310

PATIENT
  Sex: Female

DRUGS (12)
  1. ENBREL [Suspect]
     Indication: PRODUCT USED FOR UNKNOWN INDICATION
     Dosage: 50 mg, qwk
     Route: 058
  2. LIPITOR [Concomitant]
     Dosage: 10 mg, UNK
  3. ATENOLOL [Concomitant]
     Dosage: 25 mg, UNK
  4. HYDROXYCHLOROQUINE [Concomitant]
     Dosage: 200 mg, UNK
  5. MULTIVITAMIN                       /00097801/ [Concomitant]
  6. BUTAL [Concomitant]
  7. DICLOFENAC [Concomitant]
     Dosage: 75 mg, UNK
  8. CALCIUM 500+D [Concomitant]
  9. SUPER B COMPL [Concomitant]
  10. CRYSELLE-28 [Concomitant]
  11. VITAMIN D3 [Concomitant]
  12. ACIPHEX [Concomitant]
     Dosage: 20 mg, UNK

REACTIONS (1)
  - Rash [Not Recovered/Not Resolved]
